FAERS Safety Report 25675546 (Version 3)
Quarter: 2025Q4

REPORT INFORMATION
  Report Type: Spontaneous
  Country: US (occurrence: US)
  Receive Date: 20250813
  Receipt Date: 20251223
  Transmission Date: 20260118
  Serious: Yes (Hospitalization)
  Sender: ROCHE
  Company Number: US-ROCHE-10000356508

PATIENT
  Age: 55 Year
  Sex: Male

DRUGS (2)
  1. ACTEMRA [Suspect]
     Active Substance: TOCILIZUMAB
     Indication: Product used for unknown indication
  2. DUPIXENT [Concomitant]
     Active Substance: DUPILUMAB
     Indication: Dermatitis atopic
     Dosage: STRENGTH 300 MG AT A LOADING DOSE OF 600 MG 1X FOLLOWED BY DUPILUMAB MAINTENANCE DOSE OF 300 MG
     Route: 058

REACTIONS (4)
  - Pruritus [Not Recovered/Not Resolved]
  - Rebound effect [Unknown]
  - Intestinal perforation [Recovered/Resolved]
  - Eczema [Unknown]
